FAERS Safety Report 4572590-X (Version None)
Quarter: 2005Q1

REPORT INFORMATION
  Report Type: 
  Country: None (occurrence: None)
  Receive Date: 20050118
  Receipt Date: 20041015
  Transmission Date: 20050727
  Serious: Yes (Hospitalization)
  Sender: FDA-Public Use
  Company Number: HQWYE835618OCT04

PATIENT
  Age: 54 Year
  Sex: Female

DRUGS (1)
  1. PREMPHASE 14/14 [Suspect]

REACTIONS (1)
  - DEEP VEIN THROMBOSIS [None]
